FAERS Safety Report 7042446-1 (Version None)
Quarter: 2010Q4

REPORT INFORMATION
  Report Type: 
  Country: None (occurrence: None)
  Receive Date: 20101013
  Receipt Date: 20100607
  Transmission Date: 20110411
  Serious: No
  Sender: FDA-Public Use
  Company Number: US-ASTRAZENECA-2010SE26286

PATIENT
  Age: 87 Year
  Sex: Female

DRUGS (3)
  1. SYMBICORT [Suspect]
     Indication: CHRONIC OBSTRUCTIVE PULMONARY DISEASE
     Dosage: 160 MCGS TWO PUFFS BID
     Route: 055
  2. SYMBICORT [Suspect]
     Dosage: 320 MCGS TWO PUFFS BID
     Route: 055
  3. BUDESONIDE [Suspect]
     Indication: CHRONIC OBSTRUCTIVE PULMONARY DISEASE
     Route: 055

REACTIONS (3)
  - COUGH [None]
  - DRUG DISPENSING ERROR [None]
  - RHINORRHOEA [None]
